FAERS Safety Report 8800670 (Version 1)
Quarter: 2012Q4

REPORT INFORMATION
  Report Type: 
  Country: JP (occurrence: JP)
  Receive Date: 20120921
  Receipt Date: 20120921
  Transmission Date: 20130627
  Serious: Yes (Hospitalization)
  Sender: FDA-Public Use
  Company Number: JP-NAPPMUNDI-MAG-2012-0002291

PATIENT
  Age: 62 Year
  Sex: Male

DRUGS (3)
  1. OXYCODONE HCL [Suspect]
     Indication: OROPHARYNGEAL PAIN
     Dosage: 20 mg, daily
     Route: 048
     Dates: start: 20120522, end: 20120524
  2. MORPHINE HYDROCHLORIDE [Suspect]
     Indication: OROPHARYNGEAL PAIN
     Dosage: 45 mg, daily
     Route: 042
     Dates: start: 20120524, end: 20120704
  3. CELECOX [Concomitant]
     Indication: OROPHARYNGEAL PAIN
     Dosage: 400 mg, daily
     Route: 048
     Dates: start: 20120426, end: 20120702

REACTIONS (1)
  - Hepatic function abnormal [Recovered/Resolved]
